FAERS Safety Report 6202066-5 (Version None)
Quarter: 2009Q2

REPORT INFORMATION
  Report Type: 
  Country: None (occurrence: None)
  Receive Date: 20090526
  Receipt Date: 20090515
  Transmission Date: 20091009
  Serious: Yes (Death)
  Sender: FDA-Public Use
  Company Number: B0575348A

PATIENT
  Age: 29 Year
  Sex: Female
  Weight: 48.6 kg

DRUGS (1)
  1. BUPROPION HCL [Suspect]
     Indication: DRUG USE FOR UNKNOWN INDICATION
     Route: 065

REACTIONS (5)
  - CARDIO-RESPIRATORY ARREST [None]
  - DRUG LEVEL INCREASED [None]
  - OVERDOSE [None]
  - PULMONARY OEDEMA [None]
  - VOMITING [None]
